FAERS Safety Report 8841450 (Version 3)
Quarter: 2013Q2

REPORT INFORMATION
  Report Type: Spontaneous
  Country: US (occurrence: US)
  Receive Date: 20121016
  Receipt Date: 20130409
  Transmission Date: 20140414
  Serious: Yes (Hospitalization)
  Sender: FDA-Public Use
  Company Number: US-BIOGENIDEC-2012BI044585

PATIENT
  Age: 47 Year
  Sex: Female

DRUGS (6)
  1. TYSABRI [Suspect]
     Indication: MULTIPLE SCLEROSIS
     Route: 042
     Dates: start: 20120810, end: 20121008
  2. DIAZEPAM [Concomitant]
  3. GABAPENTIN [Concomitant]
  4. LUVOX [Concomitant]
  5. PLAQUENIL [Concomitant]
  6. VITAMIN D3 [Concomitant]

REACTIONS (1)
  - Anaphylactic shock [Recovered/Resolved]
